FAERS Safety Report 7627081-6 (Version None)
Quarter: 2011Q3

REPORT INFORMATION
  Report Type: 
  Country: None (occurrence: None)
  Receive Date: 20110721
  Receipt Date: 20110711
  Transmission Date: 20111222
  Serious: Yes (Hospitalization)
  Sender: FDA-Public Use
  Company Number: US-BRISTOL-MYERS SQUIBB COMPANY-15892441

PATIENT
  Age: 75 Year
  Sex: Male

DRUGS (1)
  1. COUMADIN [Suspect]
     Indication: THROMBOSIS PROPHYLAXIS

REACTIONS (4)
  - ACUTE RESPIRATORY FAILURE [None]
  - THROMBOSIS [None]
  - LOCAL SWELLING [None]
  - INTERNATIONAL NORMALISED RATIO INCREASED [None]
